FAERS Safety Report 18500826 (Version 2)
Quarter: 2023Q2

REPORT INFORMATION
  Report Type: Report from Study
  Country: US (occurrence: US)
  Receive Date: 20201113
  Receipt Date: 20230613
  Transmission Date: 20230722
  Serious: Yes (Hospitalization, Other)
  Sender: FDA-Public Use
  Company Number: US-TAKEDA-US202031991

PATIENT
  Age: 33 Year
  Sex: Female
  Weight: 57 kg

DRUGS (22)
  1. TEDUGLUTIDE [Suspect]
     Active Substance: TEDUGLUTIDE
     Indication: Short-bowel syndrome
     Dosage: 2.67 MILLIGRAM, QD
     Route: 042
     Dates: start: 20180622, end: 201901
  2. TEDUGLUTIDE [Suspect]
     Active Substance: TEDUGLUTIDE
     Indication: Short-bowel syndrome
     Dosage: 2.67 MILLIGRAM, QD
     Route: 042
     Dates: start: 20180622, end: 201901
  3. TEDUGLUTIDE [Suspect]
     Active Substance: TEDUGLUTIDE
     Indication: Short-bowel syndrome
     Dosage: 2.67 MILLIGRAM, QD
     Route: 042
     Dates: start: 20180622, end: 201901
  4. TEDUGLUTIDE [Suspect]
     Active Substance: TEDUGLUTIDE
     Indication: Short-bowel syndrome
     Dosage: 2.67 MILLIGRAM, QD
     Route: 042
     Dates: start: 20180622, end: 201901
  5. TEDUGLUTIDE [Suspect]
     Active Substance: TEDUGLUTIDE
     Dosage: 3.2 MILLIGRAM, QD
     Route: 042
     Dates: start: 201902, end: 201904
  6. TEDUGLUTIDE [Suspect]
     Active Substance: TEDUGLUTIDE
     Dosage: 3.2 MILLIGRAM, QD
     Route: 042
     Dates: start: 201902, end: 201904
  7. TEDUGLUTIDE [Suspect]
     Active Substance: TEDUGLUTIDE
     Dosage: 3.2 MILLIGRAM, QD
     Route: 042
     Dates: start: 201902, end: 201904
  8. TEDUGLUTIDE [Suspect]
     Active Substance: TEDUGLUTIDE
     Dosage: 3.2 MILLIGRAM, QD
     Route: 042
     Dates: start: 201902, end: 201904
  9. TEDUGLUTIDE [Suspect]
     Active Substance: TEDUGLUTIDE
     Dosage: 2.69 MILLIGRAM, QD
     Route: 042
     Dates: start: 201904, end: 201909
  10. TEDUGLUTIDE [Suspect]
     Active Substance: TEDUGLUTIDE
     Dosage: 2.69 MILLIGRAM, QD
     Route: 042
     Dates: start: 201904, end: 201909
  11. TEDUGLUTIDE [Suspect]
     Active Substance: TEDUGLUTIDE
     Dosage: 2.69 MILLIGRAM, QD
     Route: 042
     Dates: start: 201904, end: 201909
  12. TEDUGLUTIDE [Suspect]
     Active Substance: TEDUGLUTIDE
     Dosage: 2.69 MILLIGRAM, QD
     Route: 042
     Dates: start: 201904, end: 201909
  13. TEDUGLUTIDE [Suspect]
     Active Substance: TEDUGLUTIDE
     Dosage: 2.69 MILLIGRAM, QD
     Route: 042
     Dates: start: 20191121
  14. TEDUGLUTIDE [Suspect]
     Active Substance: TEDUGLUTIDE
     Dosage: 2.69 MILLIGRAM, QD
     Route: 042
     Dates: start: 20191121
  15. TEDUGLUTIDE [Suspect]
     Active Substance: TEDUGLUTIDE
     Dosage: 2.69 MILLIGRAM, QD
     Route: 042
     Dates: start: 20191121
  16. TEDUGLUTIDE [Suspect]
     Active Substance: TEDUGLUTIDE
     Dosage: 2.69 MILLIGRAM, QD
     Route: 042
     Dates: start: 20191121
  17. RIFAXIMIN [Concomitant]
     Active Substance: RIFAXIMIN
     Indication: Diarrhoea
     Dosage: UNK
     Route: 065
  18. LOPERAMIDE [Concomitant]
     Active Substance: LOPERAMIDE
     Indication: Diarrhoea
     Dosage: UNK
     Route: 065
  19. OPIUM TINCTURE [Concomitant]
     Active Substance: MORPHINE
     Indication: Diarrhoea
     Dosage: UNK
     Route: 065
  20. FAMOTIDINE [Concomitant]
     Active Substance: FAMOTIDINE
     Indication: Gastrooesophageal reflux disease
     Dosage: UNK
     Route: 065
  21. TPN [Concomitant]
     Active Substance: AMINO ACIDS\DEXTROSE\ELECTROLYTES NOS\SOYBEAN OIL
     Indication: Product used for unknown indication
     Dosage: UNK
     Route: 065
  22. LOMOTIL [Concomitant]
     Active Substance: ATROPINE SULFATE\DIPHENOXYLATE HYDROCHLORIDE
     Indication: Product used for unknown indication
     Dosage: UNK
     Route: 065

REACTIONS (1)
  - Lactic acidosis [Recovering/Resolving]

NARRATIVE: CASE EVENT DATE: 20200401
